FAERS Safety Report 6816244-5 (Version None)
Quarter: 2010Q3

REPORT INFORMATION
  Report Type: 
  Country: None (occurrence: None)
  Receive Date: 20100702
  Receipt Date: 20100702
  Transmission Date: 20110219
  Serious: Yes (Other)
  Sender: FDA-Public Use
  Company Number: None

PATIENT
  Age: 66 Year
  Sex: Male
  Weight: 106.5046 kg

DRUGS (11)
  1. FERAHEME [Suspect]
     Indication: IRON DEFICIENCY ANAEMIA
     Dosage: 510 MG WEEKLY X 2 IV BOLUS
     Route: 040
     Dates: start: 20100114, end: 20100114
  2. FERAHEME [Suspect]
     Indication: IRON DEFICIENCY ANAEMIA
     Dosage: 510 MG WEEKLY X 2 IV BOLUS
     Route: 040
     Dates: start: 20100121, end: 20100121
  3. FERROUS SULFATE [Concomitant]
  4. MULTIVITAMIN WITH MINERALS [Concomitant]
  5. ZOLPIDEM [Concomitant]
  6. ADVICOR [Concomitant]
  7. QUINAPRIL [Concomitant]
  8. NEXIUM [Concomitant]
  9. LOVAZA [Concomitant]
  10. ASPIRIN [Concomitant]
  11. BLOOD GLUCOSE TESTING SUPPLIES [Concomitant]

REACTIONS (5)
  - BRADYCARDIA [None]
  - CARDIAC MURMUR [None]
  - HEART RATE IRREGULAR [None]
  - HYPERTENSION [None]
  - INFUSION RELATED REACTION [None]
